FAERS Safety Report 8526263 (Version 3)
Quarter: 2013Q1

REPORT INFORMATION
  Report Type: Spontaneous
  Country: US (occurrence: US)
  Receive Date: 20120423
  Receipt Date: 20130221
  Transmission Date: 20140127
  Serious: Yes (Hospitalization)
  Sender: FDA-Public Use
  Company Number: US-GLAXOSMITHKLINE-A0774378A

PATIENT
  Age: 48 Year
  Sex: Male

DRUGS (3)
  1. AVANDARYL [Suspect]
     Indication: DIABETES MELLITUS
     Dosage: 4MG TWICE PER DAY
     Route: 048
     Dates: start: 20060619, end: 20070324
  2. AVANDIA [Suspect]
     Indication: DIABETES MELLITUS
     Dosage: 4MG PER DAY
     Route: 048
     Dates: start: 20070621, end: 200710
  3. MOTRIN [Concomitant]

REACTIONS (11)
  - Myocardial infarction [Unknown]
  - Cardiogenic shock [Unknown]
  - Cardio-respiratory arrest [Unknown]
  - Hypoxic-ischaemic encephalopathy [Unknown]
  - Multi-organ failure [Unknown]
  - Cardiac failure congestive [Unknown]
  - Cardiac failure [Unknown]
  - Palpitations [Unknown]
  - Heart rate irregular [Unknown]
  - Neuralgia [Unknown]
  - Sexual dysfunction [Unknown]
